FAERS Safety Report 5122294-X (Version None)
Quarter: 2006Q4

REPORT INFORMATION
  Report Type: 
  Country: None (occurrence: None)
  Receive Date: 20061003
  Receipt Date: 20060907
  Transmission Date: 20070319
  Serious: Yes (Death, Hospitalization, Other)
  Sender: FDA-Public Use
  Company Number: 2006-07-2061

PATIENT
  Age: 46 Year
  Sex: Male

DRUGS (5)
  1. PEG-INTRON [Suspect]
     Indication: HEPATITIS C
     Dosage: 120 MCG; /WK; SC
     Route: 058
     Dates: start: 20060113, end: 20060601
  2. RIBAVIRIN [Suspect]
     Indication: HEPATITIS C
     Dosage: 1000 MG; UNKNOWN; PO
     Route: 048
     Dates: start: 20060113, end: 20060601
  3. LEXAPRO [Concomitant]
  4. LYRICA [Concomitant]
  5. METHADONE [Concomitant]

REACTIONS (10)
  - ABDOMINAL DISTENSION [None]
  - ANAEMIA [None]
  - B-CELL LYMPHOMA [None]
  - CONFUSIONAL STATE [None]
  - DEPRESSED LEVEL OF CONSCIOUSNESS [None]
  - JAUNDICE [None]
  - ORGAN FAILURE [None]
  - SEPSIS [None]
  - SPLENOMEGALY [None]
  - THROMBOCYTOPENIA [None]
